FAERS Safety Report 8848256 (Version 1)
Quarter: 2012Q4

REPORT INFORMATION
  Report Type: 
  Country: US (occurrence: US)
  Receive Date: 20121018
  Receipt Date: 20121018
  Transmission Date: 20130627
  Serious: Yes (Hospitalization, Other)
  Sender: FDA-Public Use
  Company Number: US-ROCHE-1139841

PATIENT
  Sex: Male
  Weight: 59 kg

DRUGS (3)
  1. PROTROPIN [Suspect]
     Indication: DWARFISM
     Dosage: 2.6 mg, diluted in 1 ml
     Route: 058
     Dates: start: 19930827
  2. PROTROPIN [Suspect]
     Indication: HYPOPITUITARISM
     Route: 058
  3. PROTROPIN [Suspect]
     Indication: GROWTH HORMONE DEFICIENCY

REACTIONS (6)
  - Meningitis [Recovered/Resolved]
  - Headache [Unknown]
  - Pyrexia [Unknown]
  - Convulsion [Unknown]
  - Pneumothorax [Unknown]
  - Brain oedema [Unknown]
